FAERS Safety Report 7924810-9 (Version None)
Quarter: 2011Q4

REPORT INFORMATION
  Report Type: 
  Country: None (occurrence: None)
  Receive Date: 20111118
  Receipt Date: 20110328
  Transmission Date: 20120403
  Serious: No
  Sender: FDA-Public Use
  Company Number: US-AMGEN-USASP2011016622

PATIENT
  Sex: Female

DRUGS (5)
  1. HYDROCHLOROTHIAZIDE [Concomitant]
     Dosage: 12.5 MG, UNK
  2. PREVACID [Concomitant]
     Dosage: 15 MG, UNK
  3. ENBREL [Suspect]
     Indication: PRODUCT USED FOR UNKNOWN INDICATION
     Dosage: 25 MG, 2 TIMES/WK
  4. NAPROXEN (ALEVE) [Concomitant]
     Dosage: 220 MG, UNK
  5. AMLODIPINE [Concomitant]
     Dosage: 2.5 MG, UNK

REACTIONS (1)
  - INJECTION SITE REACTION [None]
